FAERS Safety Report 14900007 (Version 1)
Quarter: 2018Q2

REPORT INFORMATION
  Report Type: Spontaneous
  Country: FR (occurrence: FR)
  Receive Date: 20180516
  Receipt Date: 20180516
  Transmission Date: 20180711
  Serious: Yes (Other)
  Sender: FDA-Public Use
  Company Number: FR-MERCK KGAA-2047867

PATIENT
  Age: 61 Year
  Sex: Female

DRUGS (1)
  1. NOVOTHYROX [Suspect]
     Active Substance: LEVOTHYROXINE SODIUM
     Indication: PRODUCT USED FOR UNKNOWN INDICATION
     Dates: end: 20171028

REACTIONS (16)
  - Anxiety [Recovered/Resolved]
  - Stress [Recovered/Resolved]
  - Palpitations [Recovering/Resolving]
  - Impaired driving ability [Recovering/Resolving]
  - Loss of personal independence in daily activities [Recovering/Resolving]
  - Dizziness [Recovering/Resolving]
  - Thymus disorder [Recovering/Resolving]
  - Disturbance in attention [Recovering/Resolving]
  - Diabetes mellitus [Recovered/Resolved]
  - Fatigue [Recovered/Resolved]
  - Hypoaesthesia [Recovering/Resolving]
  - Antisocial behaviour [Recovering/Resolving]
  - Irritability [Recovering/Resolving]
  - Blood pressure abnormal [Recovering/Resolving]
  - Impaired work ability [Recovering/Resolving]
  - Sense of oppression [Recovering/Resolving]

NARRATIVE: CASE EVENT DATE: 201705
